FAERS Safety Report 4459659-5 (Version None)
Quarter: 2004Q3

REPORT INFORMATION
  Report Type: 
  Country: None (occurrence: None)
  Receive Date: 20040914
  Receipt Date: 20030902
  Transmission Date: 20050211
  Serious: Yes (Other)
  Sender: FDA-Public Use
  Company Number: M30802

PATIENT
  Age: 79 Year
  Sex: Female

DRUGS (3)
  1. LEVOFLOXACIN [Suspect]
     Dosage: 1 DROP TOPICAL
     Route: 061
     Dates: start: 20030826
  2. CLONIDINE HCL [Concomitant]
  3. MONOPRIL [Concomitant]

REACTIONS (3)
  - ARRHYTHMIA [None]
  - DYSPNOEA [None]
  - RASH GENERALISED [None]
